FAERS Safety Report 8076537-3 (Version None)
Quarter: 2012Q1

REPORT INFORMATION
  Report Type: 
  Country: None (occurrence: None)
  Receive Date: 20120127
  Receipt Date: 20120119
  Transmission Date: 20120608
  Serious: Yes (Other)
  Sender: FDA-Public Use
  Company Number: US-JNJFOC-20120108473

PATIENT
  Sex: Male
  Weight: 83.92 kg

DRUGS (2)
  1. DURAGESIC-100 [Suspect]
     Indication: PAIN
     Route: 062
     Dates: start: 20100301
  2. DURAGESIC-100 [Suspect]
     Route: 062

REACTIONS (8)
  - BLOOD TESTOSTERONE DECREASED [None]
  - THYROID FUNCTION TEST ABNORMAL [None]
  - LYMPHADENOPATHY [None]
  - DECREASED APPETITE [None]
  - INCORRECT DRUG ADMINISTRATION DURATION [None]
  - PAIN [None]
  - PRODUCT QUALITY ISSUE [None]
  - ABNORMAL LOSS OF WEIGHT [None]
